FAERS Safety Report 21484830 (Version 1)
Quarter: 2022Q4

REPORT INFORMATION
  Report Type: Report from Study
  Country: US (occurrence: US)
  Receive Date: 20221020
  Receipt Date: 20221020
  Transmission Date: 20230113
  Serious: No
  Sender: FDA-Public Use
  Company Number: US-ABBVIE-4142587

PATIENT
  Sex: Male

DRUGS (1)
  1. IMBRUVICA [Suspect]
     Active Substance: IBRUTINIB
     Indication: Chronic lymphocytic leukaemia
     Dosage: DRUG START DATE- AUG 2022
     Route: 048

REACTIONS (6)
  - Hypersomnia [Recovering/Resolving]
  - Constipation [Unknown]
  - Decreased appetite [Unknown]
  - Somnolence [Recovering/Resolving]
  - Blister [Unknown]
  - Localised infection [Unknown]

NARRATIVE: CASE EVENT DATE: 20220101
